FAERS Safety Report 11186928 (Version 1)
Quarter: 2015Q2

REPORT INFORMATION
  Report Type: Spontaneous
  Country: SE (occurrence: SE)
  Receive Date: 20150615
  Receipt Date: 20150615
  Transmission Date: 20150821
  Serious: Yes (Other)
  Sender: FDA-Public Use
  Company Number: SE-ABBVIE-15K-150-1405174-00

PATIENT
  Age: 35 Year
  Sex: Female

DRUGS (1)
  1. HUMIRA [Suspect]
     Active Substance: ADALIMUMAB
     Indication: CROHN^S DISEASE
     Route: 065
     Dates: end: 201408

REACTIONS (6)
  - Systemic lupus erythematosus [Unknown]
  - Pyrexia [Unknown]
  - Pain [Unknown]
  - Oedema [Unknown]
  - Fatigue [Unknown]
  - Urticaria [Unknown]

NARRATIVE: CASE EVENT DATE: 201408
